FAERS Safety Report 18816416 (Version 1)
Quarter: 2021Q1

REPORT INFORMATION
  Report Type: Spontaneous
  Country: US (occurrence: US)
  Receive Date: 20210201
  Receipt Date: 20210201
  Transmission Date: 20210419
  Serious: Yes (Other)
  Sender: FDA-Public Use
  Company Number: US-BRISTOL-MYERS SQUIBB COMPANY-BMS-2021-008568

PATIENT
  Age: 50 Year
  Sex: Male

DRUGS (1)
  1. NIVOLUMAB [Suspect]
     Active Substance: NIVOLUMAB
     Indication: MALIGNANT NEOPLASM OF THORAX
     Route: 065

REACTIONS (5)
  - Hypopituitarism [Unknown]
  - Hypothyroidism [Unknown]
  - Hypophosphataemia [Unknown]
  - Addison^s disease [Unknown]
  - Hypophysitis [Unknown]
